FAERS Safety Report 8786155 (Version 2)
Quarter: 2015Q1

REPORT INFORMATION
  Report Type: Report from Study
  Country: US (occurrence: US)
  Receive Date: 20120914
  Receipt Date: 20150312
  Transmission Date: 20150721
  Serious: Yes (Death, Other)
  Sender: FDA-Public Use
  Company Number: US-ROCHE-1122123

PATIENT
  Sex: Male

DRUGS (16)
  1. AVASTIN [Suspect]
     Active Substance: BEVACIZUMAB
     Indication: BRAIN NEOPLASM MALIGNANT
     Route: 065
  2. TEMODAR [Concomitant]
     Active Substance: TEMOZOLOMIDE
  3. DECADRON [Concomitant]
     Active Substance: DEXAMETHASONE
     Route: 042
  4. BACTRIM DS [Concomitant]
     Active Substance: SULFAMETHOXAZOLE\TRIMETHOPRIM
     Dosage: M-W-F
     Route: 065
  5. EMEND [Concomitant]
     Active Substance: APREPITANT
     Route: 048
  6. CPT-11 [Concomitant]
     Active Substance: IRINOTECAN
  7. DECADRON [Concomitant]
     Active Substance: DEXAMETHASONE
     Route: 065
  8. TARCEVA [Suspect]
     Active Substance: ERLOTINIB HYDROCHLORIDE
     Indication: BRAIN NEOPLASM MALIGNANT
     Route: 048
  9. DILAUDID [Concomitant]
     Active Substance: HYDROMORPHONE HYDROCHLORIDE
     Dosage: 4-8 MG
     Route: 048
  10. DIFLUCAN [Concomitant]
     Active Substance: FLUCONAZOLE
     Route: 065
  11. AMOXICILLIN. [Concomitant]
     Active Substance: AMOXICILLIN
     Route: 048
  12. CARBOPLATIN. [Concomitant]
     Active Substance: CARBOPLATIN
     Dosage: AUC-4
     Route: 042
  13. NEXIUM [Concomitant]
     Active Substance: ESOMEPRAZOLE MAGNESIUM
     Route: 065
  14. PROMETHAZINE [Concomitant]
     Active Substance: PROMETHAZINE\PROMETHAZINE HYDROCHLORIDE
     Indication: NAUSEA
     Route: 065
  15. WARFARIN [Concomitant]
     Active Substance: WARFARIN
     Route: 048
  16. KYTRIL [Concomitant]
     Active Substance: GRANISETRON HYDROCHLORIDE
     Route: 042

REACTIONS (12)
  - Death [Fatal]
  - Off label use [Unknown]
  - Seizure [Unknown]
  - Hemiparesis [Unknown]
  - Disease progression [Unknown]
  - Diabetes mellitus inadequate control [Unknown]
  - Fatigue [Unknown]
  - Dysuria [Unknown]
  - Headache [Unknown]
  - Alanine aminotransferase increased [Unknown]
  - Aphasia [Unknown]
  - Amnesia [Unknown]
